FAERS Safety Report 13967702 (Version 1)
Quarter: 2017Q3

REPORT INFORMATION
  Report Type: Spontaneous
  Country: US (occurrence: US)
  Receive Date: 20170914
  Receipt Date: 20170914
  Transmission Date: 20171128
  Serious: Yes (Hospitalization, Disabling, Other)
  Sender: FDA-Public Use
  Company Number: US-ASTRAZENECA-2017SE91776

PATIENT
  Age: 575 Month
  Sex: Female

DRUGS (22)
  1. FARXIGA [Suspect]
     Active Substance: DAPAGLIFLOZIN PROPANEDIOL
     Indication: TYPE 2 DIABETES MELLITUS
     Route: 048
     Dates: start: 20150716
  2. ATENOLOL. [Concomitant]
     Active Substance: ATENOLOL
     Indication: HEART RATE INCREASED
     Route: 048
     Dates: start: 201002
  3. LISINOPRIL. [Concomitant]
     Active Substance: LISINOPRIL
     Route: 048
     Dates: start: 20100212
  4. NIASPAN ER [Concomitant]
     Active Substance: NIACIN
     Indication: BLOOD TRIGLYCERIDES INCREASED
     Route: 065
     Dates: start: 201207, end: 201208
  5. FARXIGA [Suspect]
     Active Substance: DAPAGLIFLOZIN PROPANEDIOL
     Indication: TYPE 2 DIABETES MELLITUS
     Route: 048
     Dates: start: 20140108, end: 20150801
  6. TRILIPIX [Concomitant]
     Active Substance: FENOFIBRIC ACID
     Indication: BLOOD TRIGLYCERIDES INCREASED
     Route: 048
     Dates: start: 20121016
  7. FENOFIBRATE. [Concomitant]
     Active Substance: FENOFIBRATE
     Indication: BLOOD TRIGLYCERIDES INCREASED
     Route: 065
     Dates: start: 201108, end: 201208
  8. FARXIGA [Suspect]
     Active Substance: DAPAGLIFLOZIN PROPANEDIOL
     Indication: TYPE 2 DIABETES MELLITUS
     Route: 048
     Dates: start: 20140514
  9. METFORMIN [Concomitant]
     Active Substance: METFORMIN HYDROCHLORIDE
     Indication: DIABETES MELLITUS
     Route: 065
     Dates: start: 20100325
  10. HUMULIN N [Concomitant]
     Active Substance: INSULIN HUMAN
     Indication: DIABETES MELLITUS
     Dosage: 100 UNITS/MI PEN
     Route: 065
     Dates: start: 20101115
  11. GLIPIZIDE. [Concomitant]
     Active Substance: GLIPIZIDE
     Route: 065
     Dates: start: 20100313
  12. LORAZEPAM. [Concomitant]
     Active Substance: LORAZEPAM
     Route: 048
     Dates: start: 20150625
  13. HUMULIN N [Concomitant]
     Active Substance: INSULIN HUMAN
     Indication: DIABETES MELLITUS
     Dosage: 100 UNITS/MI PEN
     Route: 065
     Dates: start: 201007, end: 201012
  14. INVOKANA [Concomitant]
     Active Substance: CANAGLIFLOZIN
     Indication: DIABETES MELLITUS
     Route: 048
     Dates: start: 20131111, end: 201312
  15. PROMETHAZINE [Concomitant]
     Active Substance: PROMETHAZINE\PROMETHAZINE HYDROCHLORIDE
     Indication: ANTIALLERGIC THERAPY
     Route: 065
     Dates: start: 201207, end: 201208
  16. NOVOLOG [Concomitant]
     Active Substance: INSULIN ASPART
     Indication: DIABETES MELLITUS
     Dosage: 100 UNITS/MI FLEXAPEN
     Route: 065
     Dates: start: 20100531, end: 201008
  17. ZOFRAN [Concomitant]
     Active Substance: ONDANSETRON HYDROCHLORIDE
     Route: 065
     Dates: start: 20150801
  18. GEMFIBROZIL. [Concomitant]
     Active Substance: GEMFIBROZIL
     Indication: BLOOD TRIGLYCERIDES INCREASED
     Route: 048
     Dates: start: 20100212, end: 201108
  19. ATENOLOL. [Concomitant]
     Active Substance: ATENOLOL
     Indication: HEART RATE INCREASED
     Route: 048
     Dates: start: 20100202
  20. ALLOPURINOL. [Concomitant]
     Active Substance: ALLOPURINOL
     Indication: BLOOD URIC ACID
     Route: 048
     Dates: start: 20100202
  21. TRESIBA [Concomitant]
     Active Substance: INSULIN DEGLUDEC
     Indication: DIABETES MELLITUS
     Route: 065
     Dates: start: 201608
  22. CIPROFLOXACIN HYDROCHLORIDE. [Concomitant]
     Active Substance: CIPROFLOXACIN HYDROCHLORIDE
     Route: 048
     Dates: start: 20110810

REACTIONS (8)
  - Urinary tract infection [Unknown]
  - Spleen disorder [Unknown]
  - Cystitis [Unknown]
  - Diabetic ketoacidosis [Unknown]
  - Acute kidney injury [Unknown]
  - Renal injury [Unknown]
  - Anaemia [Unknown]
  - Nephrolithiasis [Unknown]

NARRATIVE: CASE EVENT DATE: 201506
